FAERS Safety Report 10408932 (Version 1)
Quarter: 2014Q3

REPORT INFORMATION
  Report Type: Spontaneous
  Country: US (occurrence: US)
  Receive Date: 20140826
  Receipt Date: 20140826
  Transmission Date: 20150326
  Serious: No
  Sender: FDA-Public Use
  Company Number: US-SHIRE-US201405213

PATIENT
  Sex: Female

DRUGS (1)
  1. VYVANSE [Suspect]
     Active Substance: LISDEXAMFETAMINE DIMESYLATE
     Indication: PRODUCT USED FOR UNKNOWN INDICATION
     Dosage: 40 MG, UNKNOWN
     Route: 048
     Dates: start: 20140820

REACTIONS (6)
  - Dyspepsia [Unknown]
  - Paranoia [Unknown]
  - Fatigue [Unknown]
  - Disturbance in attention [Unknown]
  - Nervousness [Unknown]
  - Mood altered [Unknown]

NARRATIVE: CASE EVENT DATE: 20140820
